FAERS Safety Report 5408242-3 (Version None)
Quarter: 2007Q3

REPORT INFORMATION
  Report Type: 
  Country: None (occurrence: None)
  Receive Date: 20070706
  Receipt Date: 20070801
  Transmission Date: 20080115
  Serious: Yes (Death, Hospitalization)
  Sender: FDA-Public Use
  Company Number: 056-C5013-07080077

PATIENT
  Age: 63 Year
  Sex: Male
  Weight: 90 kg

DRUGS (5)
  1. CC-5013 (LENALIDOMIDE) (CAPSULES) [Suspect]
     Indication: MULTIPLE MYELOMA
     Dosage: 25 MG, DAILY, ORAL
     Route: 048
     Dates: start: 20070420, end: 20070505
  2. DEXAMETHASONE TAB [Concomitant]
  3. OXYCONTIN [Concomitant]
  4. CEPHALOSPORIN (CEPHALOSPORINS AND RELATED SUBSTANCES) [Concomitant]
  5. FLUOROQUINOLONE (FLUOROQUINOLONES) [Concomitant]

REACTIONS (4)
  - ANAEMIA [None]
  - GINGIVAL BLEEDING [None]
  - LEUKOPENIA [None]
  - THROMBOCYTOPENIA [None]
